FAERS Safety Report 15798959 (Version 1)
Quarter: 2019Q1

REPORT INFORMATION
  Report Type: Spontaneous
  Country: US (occurrence: US)
  Receive Date: 20190108
  Receipt Date: 20190108
  Transmission Date: 20190417
  Serious: No
  Sender: FDA-Public Use
  Company Number: US-GLAXOSMITHKLINE-US2019000092

PATIENT
  Sex: Female

DRUGS (1)
  1. FLOVENT [Suspect]
     Active Substance: FLUTICASONE PROPIONATE
     Indication: PRODUCT USED FOR UNKNOWN INDICATION
     Dosage: 1 PUFF(S), QD
     Route: 055
     Dates: start: 201812, end: 201812

REACTIONS (23)
  - Cough [Recovered/Resolved]
  - Hunger [Recovered/Resolved]
  - Dysphagia [Recovered/Resolved]
  - Dizziness [Recovered/Resolved]
  - Abdominal pain upper [Recovered/Resolved]
  - Dyspnoea exertional [Recovered/Resolved]
  - Lacrimation increased [Recovered/Resolved]
  - Dysphonia [Recovered/Resolved]
  - Sneezing [Recovered/Resolved]
  - Blood pressure increased [Recovered/Resolved]
  - Tongue disorder [Recovered/Resolved]
  - Myalgia [Recovered/Resolved]
  - Muscular weakness [Recovered/Resolved]
  - Speech disorder [Recovered/Resolved]
  - Underdose [Recovered/Resolved]
  - Dysuria [Not Recovered/Not Resolved]
  - Bone pain [Recovered/Resolved]
  - Wheezing [Recovered/Resolved]
  - Oral disorder [Recovered/Resolved]
  - Pruritus [Recovered/Resolved]
  - Dry mouth [Recovered/Resolved]
  - Musculoskeletal chest pain [Recovered/Resolved]
  - Eye pruritus [Recovered/Resolved]

NARRATIVE: CASE EVENT DATE: 201812
